FAERS Safety Report 13793051 (Version 1)
Quarter: 2017Q3

REPORT INFORMATION
  Report Type: Spontaneous
  Country: US (occurrence: US)
  Receive Date: 20170726
  Receipt Date: 20170726
  Transmission Date: 20171127
  Serious: Yes (Life-Threatening)
  Sender: FDA-Public Use
  Company Number: None

PATIENT
  Age: 64 Year
  Sex: Female
  Weight: 62 kg

DRUGS (7)
  1. PIPERACILLIN AND TAZOBACTAM [Concomitant]
     Active Substance: PIPERACILLIN SODIUM\TAZOBACTAM SODIUM
  2. |SPIRONOLACTONE [Concomitant]
  3. DROXIDOPA [Suspect]
     Active Substance: DROXIDOPA
     Indication: ORTHOSTATIC HYPOTENSION
     Route: 048
     Dates: start: 20170616, end: 20170709
  4. ASPIRIN. [Concomitant]
     Active Substance: ASPIRIN
  5. FUROSEMIDE. [Concomitant]
     Active Substance: FUROSEMIDE
  6. AMIODARONE [Concomitant]
     Active Substance: AMIODARONE
  7. ZETIA [Concomitant]
     Active Substance: EZETIMIBE

REACTIONS (9)
  - Hemiparesis [None]
  - Neuroleptic malignant syndrome [None]
  - Muscle rigidity [None]
  - Tachypnoea [None]
  - Catatonia [None]
  - Delirium [None]
  - Mutism [None]
  - Myoclonus [None]
  - Muscle contractions involuntary [None]

NARRATIVE: CASE EVENT DATE: 20170702
